FAERS Safety Report 9724950 (Version 1)
Quarter: 2013Q4

REPORT INFORMATION
  Report Type: Spontaneous
  Country: DK (occurrence: DK)
  Receive Date: 20131202
  Receipt Date: 20131202
  Transmission Date: 20140711
  Serious: Yes (Other)
  Sender: FDA-Public Use
  Company Number: DK-BAXTER-2013BAX045650

PATIENT
  Sex: Female

DRUGS (9)
  1. SENDOXAN [Suspect]
     Indication: CHEMOTHERAPY
     Route: 065
     Dates: start: 20100908
  2. SENDOXAN [Suspect]
     Route: 065
     Dates: start: 20100929
  3. SENDOXAN [Suspect]
     Route: 065
     Dates: start: 20101027, end: 20101027
  4. EPIRUBICIN [Suspect]
     Indication: CHEMOTHERAPY
     Route: 065
     Dates: start: 20100908
  5. EPIRUBICIN [Suspect]
     Route: 065
     Dates: start: 20100929
  6. EPIRUBICIN [Suspect]
     Route: 065
     Dates: start: 20101027, end: 20101027
  7. TAXOTERE [Suspect]
     Indication: CHEMOTHERAPY
     Route: 065
     Dates: start: 20101124
  8. TAXOTERE [Suspect]
     Route: 065
     Dates: start: 20101215
  9. TAXOTERE [Suspect]
     Route: 065
     Dates: start: 20110105, end: 20110105

REACTIONS (4)
  - Periodontitis [Unknown]
  - Loose tooth [Unknown]
  - Dry mouth [Unknown]
  - Stomatitis [Unknown]
